FAERS Safety Report 8430567-8 (Version None)
Quarter: 2012Q2

REPORT INFORMATION
  Report Type: 
  Country: None (occurrence: None)
  Receive Date: 20120612
  Receipt Date: 20120605
  Transmission Date: 20120825
  Serious: Yes (Other)
  Sender: FDA-Public Use
  Company Number: JP-GLAXOSMITHKLINE-B0806807A

PATIENT
  Age: 36 Year
  Sex: Male

DRUGS (7)
  1. DEPAKENE [Concomitant]
     Route: 048
  2. PAXIL [Suspect]
     Indication: PRODUCT USED FOR UNKNOWN INDICATION
     Dosage: 40MG PER DAY
     Route: 048
  3. PAXIL [Suspect]
     Dosage: 15MG PER DAY
     Route: 048
  4. CYMBALTA [Concomitant]
     Route: 048
  5. HALCION [Concomitant]
     Route: 048
  6. PAXIL [Suspect]
     Dosage: 10MG PER DAY
     Route: 048
  7. ROHYPNOL [Concomitant]
     Route: 065

REACTIONS (5)
  - MEMORY IMPAIRMENT [None]
  - LOSS OF CONSCIOUSNESS [None]
  - HEADACHE [None]
  - ROAD TRAFFIC ACCIDENT [None]
  - CONTUSION [None]
